FAERS Safety Report 10024420 (Version 2)
Quarter: 2014Q1

REPORT INFORMATION
  Report Type: Spontaneous
  Country: US (occurrence: None)
  Receive Date: 20140204
  Receipt Date: 20140207
  Transmission Date: 20141002
  Serious: Yes (Other)
  Sender: FDA-Public Use
  Company Number: ADR-2013-02303

PATIENT
  Age: 57 Year
  Sex: Female

DRUGS (11)
  1. LIORESAL [Suspect]
     Indication: MUSCLE SPASTICITY
     Dates: start: 20090921
  2. SENNA [Suspect]
  3. TIZANIDINE [Suspect]
  4. FERROUS SULFATE [Suspect]
  5. PROTEIN [Suspect]
  6. LEVOTHYROXINE [Suspect]
  7. POLYETHYLENE GLYCOL [Suspect]
  8. LIQUID TEARS [Suspect]
  9. VALIUM [Suspect]
  10. FEXOFENADINE [Suspect]
  11. ORAL GABAPENTIN [Suspect]

REACTIONS (8)
  - Device dislocation [None]
  - Hypotension [None]
  - Hypotension [None]
  - Bradycardia [None]
  - Hypothermia [None]
  - Hypertension [None]
  - Wound sepsis [None]
  - Urosepsis [None]
